FAERS Safety Report 6199826-6 (Version None)
Quarter: 2009Q2

REPORT INFORMATION
  Report Type: 
  Country: None (occurrence: None)
  Receive Date: 20090518
  Receipt Date: 20090313
  Transmission Date: 20091009
  Serious: Yes (Other)
  Sender: FDA-Public Use
  Company Number: WAES 0903USA02326

PATIENT
  Sex: Female

DRUGS (3)
  1. JANUVIA [Suspect]
     Indication: TYPE 2 DIABETES MELLITUS
     Dosage: 100 MG/DAILY/PO
     Route: 048
     Dates: start: 20080601
  2. ACTOS [Concomitant]
  3. GLUCOPHAGE [Concomitant]

REACTIONS (1)
  - PANCREATITIS [None]
